FAERS Safety Report 8640431 (Version 2)
Quarter: 2014Q3

REPORT INFORMATION
  Report Type: Spontaneous
  Country: US (occurrence: US)
  Receive Date: 20120628
  Receipt Date: 20140702
  Transmission Date: 20150326
  Serious: No
  Sender: FDA-Public Use
  Company Number: US-PFIZER INC-2012151400

PATIENT
  Age: 47 Year
  Sex: Female

DRUGS (9)
  1. CLONAZEPAM. [Suspect]
     Active Substance: CLONAZEPAM
     Dosage: UNK
  2. FLEXERIL [Suspect]
     Active Substance: CYCLOBENZAPRINE HYDROCHLORIDE
     Dosage: UNK
  3. NORCO [Suspect]
     Active Substance: ACETAMINOPHEN\HYDROCODONE BITARTRATE
     Dosage: UNK
  4. LORTAB [Suspect]
     Active Substance: ACETAMINOPHEN\HYDROCODONE BITARTRATE
     Dosage: UNK
  5. MULTIPLE VITAMINS [Suspect]
     Active Substance: VITAMINS
  6. VALIUM [Suspect]
     Active Substance: DIAZEPAM
     Dosage: UNK
  7. BENZYLPENICILLIN POTASSIUM [Suspect]
     Active Substance: PENICILLIN G POTASSIUM
     Dosage: UNK
  8. COD-LIVER OIL [Suspect]
     Active Substance: FISH OIL
     Dosage: UNK
  9. ORTHO MICRONOR [Suspect]
     Active Substance: NORETHINDRONE
     Dosage: UNK

REACTIONS (1)
  - Drug hypersensitivity [Unknown]
